FAERS Safety Report 12248912 (Version 1)
Quarter: 2016Q2

REPORT INFORMATION
  Report Type: Spontaneous
  Country: CN (occurrence: CN)
  Receive Date: 20160408
  Receipt Date: 20160408
  Transmission Date: 20160815
  Serious: Yes (Death, Other)
  Sender: FDA-Public Use
  Company Number: CN-OTSUKA-2016_007829

PATIENT

DRUGS (6)
  1. DACOGEN [Suspect]
     Active Substance: DECITABINE
     Indication: MYELODYSPLASTIC SYNDROME
     Dosage: 25 MG/M2, 1 IN 1 DAY
     Route: 065
  2. CYTARABINE. [Suspect]
     Active Substance: CYTARABINE
     Indication: MYELODYSPLASTIC SYNDROME
     Dosage: 150 MG/M2, 1 IN 1 DAY
     Route: 050
  3. MITOXANTRONE [Suspect]
     Active Substance: MITOXANTRONE HYDROCHLORIDE
     Indication: ACUTE MYELOID LEUKAEMIA
     Dosage: 8 MG/M2, 1 IN 1 DAY
     Route: 065
  4. CYTARABINE. [Suspect]
     Active Substance: CYTARABINE
     Indication: ACUTE MYELOID LEUKAEMIA
  5. DACOGEN [Suspect]
     Active Substance: DECITABINE
     Indication: ACUTE MYELOID LEUKAEMIA
  6. GRANULOCYTE COLONY STIMULATING FACTOR [Suspect]
     Active Substance: GRANULOCYTE COLONY-STIMULATING FACTOR NOS
     Indication: MYELODYSPLASTIC SYNDROME
     Dosage: INFUSION 24 HRS AFTER EACH CYCLE OF CYTARABINE- POST REMISSION
     Route: 042

REACTIONS (12)
  - Cardiac disorder [Unknown]
  - Mucosal inflammation [Unknown]
  - Liver disorder [Unknown]
  - Sepsis [Unknown]
  - Gastrointestinal infection [Fatal]
  - Vomiting [Unknown]
  - Renal disorder [Unknown]
  - Diarrhoea [Unknown]
  - Respiratory tract infection [Fatal]
  - Nausea [Unknown]
  - Haemorrhage [Fatal]
  - Swelling [Unknown]
